FAERS Safety Report 6627955-9 (Version None)
Quarter: 2010Q1

REPORT INFORMATION
  Report Type: 
  Country: None (occurrence: None)
  Receive Date: 20100311
  Receipt Date: 20090416
  Transmission Date: 20100710
  Serious: No
  Sender: FDA-Public Use
  Company Number: A0779159A

PATIENT
  Age: 52 Year
  Sex: Female

DRUGS (1)
  1. NICORETTE [Suspect]
     Indication: ILL-DEFINED DISORDER
     Dates: start: 20090415, end: 20090415

REACTIONS (1)
  - DYSGEUSIA [None]
